FAERS Safety Report 5759291-7 (Version None)
Quarter: 2008Q2

REPORT INFORMATION
  Report Type: 
  Country: None (occurrence: None)
  Receive Date: 20080604
  Receipt Date: 20080520
  Transmission Date: 20081010
  Serious: Yes (Hospitalization)
  Sender: FDA-Public Use
  Company Number: DE-GENENTECH-260465

PATIENT
  Sex: Female
  Weight: 59 kg

DRUGS (1)
  1. HERCEPTIN [Suspect]
     Indication: DRUG USE FOR UNKNOWN INDICATION
     Dosage: 354 MG, UNK
     Route: 042
     Dates: start: 20071001

REACTIONS (3)
  - APHTHOUS STOMATITIS [None]
  - DYSPHAGIA [None]
  - ULCER [None]
